FAERS Safety Report 4698995-4 (Version None)
Quarter: 2005Q2

REPORT INFORMATION
  Report Type: 
  Country: None (occurrence: None)
  Receive Date: 20050624
  Receipt Date: 20020311
  Transmission Date: 20051028
  Serious: Yes (Death, Hospitalization)
  Sender: FDA-Public Use
  Company Number: PHBS2002BR03427

PATIENT
  Age: 66 Year
  Sex: Female
  Weight: 92 kg

DRUGS (5)
  1. FORADIL [Suspect]
     Dosage: 12 UG/DAY
     Dates: start: 20000501, end: 20010510
  2. MIFLASONA [Concomitant]
     Dosage: 2 DF/DAY
     Route: 048
     Dates: start: 20000501
  3. DAONIL [Concomitant]
     Indication: DIABETES MELLITUS
  4. METICORTEN [Concomitant]
  5. CLORANA [Concomitant]
     Indication: PROPHYLAXIS

REACTIONS (6)
  - BRONCHOPNEUMONIA [None]
  - DIABETES MELLITUS [None]
  - HYPERTENSION [None]
  - PERITONEAL DIALYSIS [None]
  - RENAL IMPAIRMENT [None]
  - SEPTIC SHOCK [None]
